FAERS Safety Report 8546106 (Version 8)
Quarter: 2012Q4

REPORT INFORMATION
  Report Type: Report from Study
  Country: JP (occurrence: JP)
  Receive Date: 20120504
  Receipt Date: 20121226
  Transmission Date: 20130627
  Serious: No
  Sender: FDA-Public Use
  Company Number: JP-JNJFOC-20120503048

PATIENT
  Age: 49 Year
  Sex: Female
  Weight: 60 kg

DRUGS (9)
  1. DUROTEP MT [Suspect]
     Indication: PAIN
     Dosage: 6.25 ug/hr
     Route: 062
     Dates: start: 20110209, end: 20120216
  2. LYRICA [Concomitant]
     Indication: PAIN
     Route: 048
  3. DEPAS [Concomitant]
     Indication: PAIN
     Route: 048
     Dates: start: 20110216, end: 20110323
  4. ZOLOFT [Concomitant]
     Indication: PAIN
     Route: 048
     Dates: start: 20110216, end: 20110315
  5. CALONAL [Concomitant]
     Indication: PAIN
     Route: 048
  6. MAGLAX [Concomitant]
     Indication: PROPHYLAXIS
     Route: 048
  7. ANAPEINE [Concomitant]
     Indication: PAIN
     Route: 065
  8. NEUROTROPIN [Concomitant]
     Indication: PAIN
     Route: 042
  9. NEUROTROPIN [Concomitant]
     Indication: PAIN
     Dosage: 3.6 Iu
     Route: 042

REACTIONS (4)
  - Drug intolerance [Unknown]
  - Nausea [Recovering/Resolving]
  - Drug administration error [Unknown]
  - Somnolence [Recovering/Resolving]
